FAERS Safety Report 10157225 (Version 1)
Quarter: 2014Q2

REPORT INFORMATION
  Report Type: Report from Study
  Country: DE (occurrence: DE)
  Receive Date: 20140507
  Receipt Date: 20140507
  Transmission Date: 20141212
  Serious: Yes (Death)
  Sender: FDA-Public Use
  Company Number: DE-INCYTE CORPORATION-2014IN001093

PATIENT
  Sex: Male
  Weight: 72 kg

DRUGS (6)
  1. INCB018424 [Suspect]
     Indication: MYELOFIBROSIS
     Dosage: 10 MG, QD
     Route: 048
     Dates: start: 20130508
  2. EXJADE [Suspect]
     Indication: IRON OVERLOAD
     Dosage: 1000 MG, PER DAY
     Route: 065
     Dates: start: 20130710, end: 20130723
  3. EXJADE [Suspect]
     Dosage: 500 MG, PER DAY
     Route: 065
     Dates: start: 20130731
  4. UNIMAX [Concomitant]
     Dosage: UNK
     Dates: start: 20080122
  5. MICARDIS PLUS [Concomitant]
     Dosage: UNK
     Dates: start: 20080122, end: 20131114
  6. NEBILET [Concomitant]
     Dosage: UNK
     Dates: start: 20080122

REACTIONS (1)
  - Myelofibrosis [Fatal]
